FAERS Safety Report 5079384-X (Version None)
Quarter: 2006Q3

REPORT INFORMATION
  Report Type: 
  Country: None (occurrence: None)
  Receive Date: 20060809
  Receipt Date: 20060727
  Transmission Date: 20061208
  Serious: Yes (Life-Threatening, Hospitalization, Other)
  Sender: FDA-Public Use
  Company Number: 2004058193

PATIENT
  Age: 39 Year
  Sex: Female
  Weight: 79.3795 kg

DRUGS (9)
  1. NEURONTIN [Suspect]
     Indication: NERVE INJURY
     Dosage: 600 MG (300 MG, 2 IN 1 D), ORAL
     Route: 048
     Dates: start: 20040525, end: 20040707
  2. NEURONTIN [Suspect]
     Indication: PAIN
     Dosage: 600 MG (300 MG, 2 IN 1 D), ORAL
     Route: 048
     Dates: start: 20040525, end: 20040707
  3. WELLBUTRIN XL [Concomitant]
  4. LIBRIUM [Concomitant]
  5. XANAFLEX (TIZANIDINE HYDROCHLORIDE) [Concomitant]
  6. VICODIN ES [Concomitant]
  7. DEPO-ESTRADIOL [Concomitant]
  8. VITAMINS (VITAMINS) [Concomitant]
  9. LORCET-HD [Concomitant]

REACTIONS (8)
  - AGITATION [None]
  - AMNESIA [None]
  - ANGER [None]
  - CRYING [None]
  - DRUG INEFFECTIVE [None]
  - INTENTIONAL SELF-INJURY [None]
  - LACERATION [None]
  - SUICIDE ATTEMPT [None]
